FAERS Safety Report 20870201 (Version 1)
Quarter: 2022Q2

REPORT INFORMATION
  Report Type: Spontaneous
  Country: FR (occurrence: FR)
  Receive Date: 20220525
  Receipt Date: 20220525
  Transmission Date: 20220721
  Serious: Yes (Other)
  Sender: FDA-Public Use
  Company Number: FR-CELLTRION INC.-2022FR007208

PATIENT

DRUGS (4)
  1. TRASTUZUMAB [Suspect]
     Active Substance: TRASTUZUMAB
     Indication: HER2 positive breast cancer
  2. TRASTUZUMAB [Suspect]
     Active Substance: TRASTUZUMAB
     Indication: Breast cancer metastatic
  3. ETOPOSIDE [Suspect]
     Active Substance: ETOPOSIDE
     Indication: HER2 positive breast cancer
     Dosage: 50 MG OR 75 MG PER DAY FOR 10?14 DAYS OUT OF 21 WAS DEFINED AS THE STANDARD ORAL VP16 REGIMEN
  4. ETOPOSIDE [Suspect]
     Active Substance: ETOPOSIDE
     Indication: Breast cancer metastatic

REACTIONS (13)
  - Metastases to central nervous system [Unknown]
  - Disease progression [Unknown]
  - Asthenia [Unknown]
  - Neutropenia [Unknown]
  - Neutropenia [Unknown]
  - Neutropenia [Unknown]
  - Nausea [Unknown]
  - Nausea [Unknown]
  - Alopecia [Unknown]
  - Asthenia [Unknown]
  - Asthenia [Unknown]
  - Therapy interrupted [Unknown]
  - Therapy partial responder [Unknown]
